FAERS Safety Report 11129833 (Version 1)
Quarter: 2015Q2

REPORT INFORMATION
  Report Type: Spontaneous
  Country: US (occurrence: US)
  Receive Date: 20150521
  Receipt Date: 20150521
  Transmission Date: 20150821
  Serious: Yes (Hospitalization, Disabling, Other)
  Sender: FDA-Public Use
  Company Number: US-009507513-1204USA00565

PATIENT
  Sex: Male

DRUGS (4)
  1. FOSAMAX [Suspect]
     Active Substance: ALENDRONATE SODIUM
     Route: 048
  2. BONIVA [Suspect]
     Active Substance: IBANDRONATE SODIUM
     Indication: OSTEOPOROSIS
     Dosage: 150 MG, Q MONTH
     Route: 048
     Dates: start: 200901, end: 20120321
  3. FOSAMAX [Suspect]
     Active Substance: ALENDRONATE SODIUM
     Route: 048
  4. FOSAMAX PLUS D [Suspect]
     Active Substance: ALENDRONATE SODIUM\CHOLECALCIFEROL
     Route: 048

REACTIONS (53)
  - Renal failure [Unknown]
  - Extremity necrosis [Unknown]
  - Confusional state [Recovered/Resolved]
  - Back pain [Unknown]
  - Osteoporosis [Not Recovered/Not Resolved]
  - Osteonecrosis [Unknown]
  - Peroneal nerve palsy [Unknown]
  - Gastrooesophageal reflux disease [Unknown]
  - Arthralgia [Unknown]
  - Femur fracture [Not Recovered/Not Resolved]
  - Stress fracture [Not Recovered/Not Resolved]
  - Low turnover osteopathy [Not Recovered/Not Resolved]
  - Lung transplant [Unknown]
  - Deep vein thrombosis [Unknown]
  - Rhabdomyolysis [Recovered/Resolved]
  - Hip arthroplasty [Unknown]
  - Open reduction of fracture [Unknown]
  - Hypertension [Unknown]
  - Type 2 diabetes mellitus [Unknown]
  - Neuropathic muscular atrophy [Unknown]
  - Transplant rejection [Unknown]
  - Cholecystitis chronic [Not Recovered/Not Resolved]
  - Intramedullary rod insertion [Unknown]
  - Neuropathy peripheral [Unknown]
  - Hypercholesterolaemia [Unknown]
  - Pneumonia cytomegaloviral [Unknown]
  - Osteopenia [Unknown]
  - Incision site erythema [Unknown]
  - Oedema peripheral [Unknown]
  - Bone disorder [Not Recovered/Not Resolved]
  - Cytomegalovirus infection [Unknown]
  - Fall [Unknown]
  - Pneumonia pseudomonal [Unknown]
  - Pneumonia [Unknown]
  - Emphysema [Unknown]
  - Deep vein thrombosis [Not Recovered/Not Resolved]
  - Anaemia [Not Recovered/Not Resolved]
  - Chronic obstructive pulmonary disease [Not Recovered/Not Resolved]
  - Bacteraemia [Unknown]
  - Haematoma [Unknown]
  - Hip fracture [Unknown]
  - Transplant rejection [Unknown]
  - Adverse event [Unknown]
  - Osteoarthritis [Unknown]
  - Immunosuppression [Not Recovered/Not Resolved]
  - Chronic kidney disease [Not Recovered/Not Resolved]
  - Anaemia [Unknown]
  - Pneumothorax [Unknown]
  - Mycobacterium avium complex infection [Unknown]
  - Excessive skin [Unknown]
  - Mononeuropathy [Unknown]
  - Device issue [Unknown]
  - Nausea [Recovered/Resolved]

NARRATIVE: CASE EVENT DATE: 2001
